FAERS Safety Report 8004560-3 (Version None)
Quarter: 2011Q4

REPORT INFORMATION
  Report Type: 
  Country: None (occurrence: None)
  Receive Date: 20111220
  Receipt Date: 20111205
  Transmission Date: 20120403
  Serious: Yes (Other)
  Sender: FDA-Public Use
  Company Number: DSJ-2011-26201

PATIENT
  Age: 68 Year
  Sex: Female

DRUGS (2)
  1. BENICAR HCT [Suspect]
     Indication: HYPERTENSION
     Dosage: 40/12.5MG (1 IN 1 D), PER ORAL
     Route: 048
     Dates: start: 20110501
  2. METFORMIN HCL [Concomitant]

REACTIONS (1)
  - CATARACT [None]
